FAERS Safety Report 19114072 (Version 3)
Quarter: 2021Q3

REPORT INFORMATION
  Report Type: Report from Study
  Country: US (occurrence: US)
  Receive Date: 20210408
  Receipt Date: 20210720
  Transmission Date: 20211014
  Serious: No
  Sender: FDA-Public Use
  Company Number: NVSC2021US079905

PATIENT
  Age: 68 Year
  Sex: Female

DRUGS (1)
  1. ENTRESTO [Suspect]
     Active Substance: SACUBITRIL\VALSARTAN
     Indication: PRODUCT USED FOR UNKNOWN INDICATION
     Dosage: UNK
     Route: 048
     Dates: start: 20170101

REACTIONS (2)
  - Fatigue [Not Recovered/Not Resolved]
  - Hyperhidrosis [Unknown]

NARRATIVE: CASE EVENT DATE: 20200401
